FAERS Safety Report 11349886 (Version 1)
Quarter: 2015Q3

REPORT INFORMATION
  Report Type: Report from Study
  Country: US (occurrence: US)
  Receive Date: 20150807
  Receipt Date: 20150807
  Transmission Date: 20151125
  Serious: No
  Sender: FDA-Public Use
  Company Number: US-AMGEN-USASP2015078281

PATIENT
  Sex: Female

DRUGS (1)
  1. ENBREL [Suspect]
     Active Substance: ETANERCEPT
     Indication: PRODUCT USED FOR UNKNOWN INDICATION
     Dosage: UNK
     Route: 065

REACTIONS (15)
  - Blister [Unknown]
  - Blood urine present [Unknown]
  - Feeling hot [Unknown]
  - Local swelling [Unknown]
  - Lymphadenopathy [Unknown]
  - Cold sweat [Unknown]
  - Nausea [Unknown]
  - Lymph node pain [Unknown]
  - Headache [Unknown]
  - Urinary tract infection [Unknown]
  - Ovarian cyst [Unknown]
  - Abdominal pain [Unknown]
  - Groin pain [Unknown]
  - Alopecia [Unknown]
  - Neck pain [Unknown]
